FAERS Safety Report 15523983 (Version 1)
Quarter: 2018Q4

REPORT INFORMATION
  Report Type: Spontaneous
  Country: ES (occurrence: ES)
  Receive Date: 20181019
  Receipt Date: 20181019
  Transmission Date: 20190205
  Serious: Yes (Life-Threatening)
  Sender: FDA-Public Use
  Company Number: ES-TEVA-2018-ES-966516

PATIENT
  Age: 46 Year
  Sex: Male

DRUGS (6)
  1. HALOPERIDOL 2 MG/ML SOLUCI?N/SUSPENSI?N GOTAS ORALES [Concomitant]
     Indication: HUNTINGTON^S DISEASE
     Route: 048
     Dates: start: 20180910
  2. ESCITALOPRAM 20 MG 28 COMPRIMIDOS [Concomitant]
     Indication: PERSISTENT DEPRESSIVE DISORDER
     Dosage: 1 DOSAGE FORMS DAILY;
     Route: 048
     Dates: start: 20110323
  3. AMOXICILINA/?CIDO CLAVUL?NICO 500 MG/125 MG COMPRIMIDO [Suspect]
     Active Substance: AMOXICILLIN\CLAVULANIC ACID
     Indication: OTITIS MEDIA ACUTE
     Route: 048
     Dates: start: 20180914, end: 20180921
  4. CLONAZEPAM 0,5 MG 60 COMPRIMIDO [Concomitant]
     Indication: HUNTINGTON^S DISEASE
     Route: 048
     Dates: start: 20170728
  5. HIDROFEROL 0,266 MG SOLUCION ORAL , 10 AMPOLLAS BEBIBLES DE 1,5 ML [Concomitant]
     Active Substance: CALCIFEDIOL
     Indication: VITAMIN D DEFICIENCY
     Route: 048
     Dates: start: 20180406
  6. TETRABENAZINA 25 MG COMPRIMIDO [Concomitant]
     Indication: HUNTINGTON^S DISEASE
     Route: 048
     Dates: start: 20180910

REACTIONS (1)
  - Lethargy [Recovering/Resolving]

NARRATIVE: CASE EVENT DATE: 20180920
